FAERS Safety Report 5074079-0 (Version None)
Quarter: 2006Q3

REPORT INFORMATION
  Report Type: 
  Country: None (occurrence: None)
  Receive Date: 20060808
  Receipt Date: 20060321
  Transmission Date: 20061208
  Serious: No
  Sender: FDA-Public Use
  Company Number: US-AMGEN-US173197

PATIENT
  Sex: Female

DRUGS (12)
  1. EPOGEN [Suspect]
     Indication: DIALYSIS
  2. OXYCONTIN [Concomitant]
  3. METHADONE HCL [Concomitant]
  4. FOLIC ACID [Concomitant]
  5. HYDRALAZINE HYDROCHLORIDE [Concomitant]
  6. LASIX [Concomitant]
  7. MAGNESIUM OXIDE [Concomitant]
  8. PROTONIX [Concomitant]
  9. RENALTABS [Concomitant]
  10. NIFEDIPINE [Concomitant]
  11. CALCIUM GLUCONATE [Concomitant]
  12. SILDENAFIL CITRATE [Concomitant]

REACTIONS (1)
  - THERAPEUTIC RESPONSE DECREASED [None]
